FAERS Safety Report 8408963 (Version 2)
Quarter: 2013Q2

REPORT INFORMATION
  Report Type: Spontaneous
  Country: US (occurrence: None)
  Receive Date: 20111227
  Receipt Date: 20120426
  Transmission Date: 20140414
  Serious: No
  Sender: FDA-Public Use
  Company Number: PHEH2011US06071

PATIENT
  Sex: Female

DRUGS (1)
  1. GILENYA [Suspect]
     Indication: MULTIPLE SCLEROSIS
     Dosage: 0.5 MG, DAILY, ORAL
     Route: 048
     Dates: start: 20110517

REACTIONS (6)
  - AMNESIA [None]
  - URINE ODOUR ABNORMAL [None]
  - NASOPHARYNGITIS [None]
  - ORAL HERPES [None]
  - Balance disorder [None]
  - Tremor [None]
